FAERS Safety Report 15066106 (Version 1)
Quarter: 2018Q2

REPORT INFORMATION
  Report Type: Spontaneous
  Country: IN (occurrence: IN)
  Receive Date: 20180626
  Receipt Date: 20180626
  Transmission Date: 20180711
  Serious: Yes (Death, Hospitalization)
  Sender: FDA-Public Use
  Company Number: IN-ASTELLAS-2018US028390

PATIENT
  Age: 13 Year
  Sex: Male
  Weight: 25 kg

DRUGS (7)
  1. NIFEDIPINE. [Concomitant]
     Active Substance: NIFEDIPINE
     Indication: NEPHROTIC SYNDROME
     Route: 065
  2. TACROLIMUS. [Suspect]
     Active Substance: TACROLIMUS
     Indication: NEPHROTIC SYNDROME
     Dosage: 0.75 MG, TWICE DAILY
     Route: 065
  3. CALCIUM [Concomitant]
     Active Substance: CALCIUM
     Indication: NEPHROTIC SYNDROME
     Dosage: UNK UNK, UNKNOWN FREQ.
     Route: 065
  4. ATORVASTATIN [Suspect]
     Active Substance: ATORVASTATIN
     Indication: PRODUCT USED FOR UNKNOWN INDICATION
     Route: 065
  5. PREDNISOLONE. [Suspect]
     Active Substance: PREDNISOLONE
     Indication: NEPHROTIC SYNDROME
     Route: 065
  6. LOSARTAN. [Concomitant]
     Active Substance: LOSARTAN
     Indication: NEPHROTIC SYNDROME
     Route: 065
  7. VITAMIN D                          /00107901/ [Concomitant]
     Active Substance: ERGOCALCIFEROL
     Indication: NEPHROTIC SYNDROME
     Dosage: UNK UNK, UNKNOWN FREQ.
     Route: 065

REACTIONS (10)
  - Mesenteric vein thrombosis [Unknown]
  - Hypoxia [Unknown]
  - Off label use [Unknown]
  - Disseminated intravascular coagulation [Unknown]
  - Product use in unapproved indication [Unknown]
  - Constipation [Unknown]
  - Death [Fatal]
  - Portal vein thrombosis [Unknown]
  - Hypotension [Unknown]
  - Gastrointestinal necrosis [Unknown]
